FAERS Safety Report 8488924-X (Version None)
Quarter: 2012Q3

REPORT INFORMATION
  Report Type: 
  Country: None (occurrence: None)
  Receive Date: 20120705
  Receipt Date: 20120625
  Transmission Date: 20120928
  Serious: No
  Sender: FDA-Public Use
  Company Number: US-B.I. PHARMACEUTICALS,INC./RIDGEFIELD-2012-BP-14414BP

PATIENT
  Sex: Male
  Weight: 93 kg

DRUGS (13)
  1. SPIRIVA [Suspect]
     Indication: DYSPNOEA
     Dosage: 18 MCG
     Route: 055
     Dates: start: 20100101
  2. DILUDID [Concomitant]
     Indication: NECK PAIN
  3. MULTI-VITAMINS [Concomitant]
     Indication: PROPHYLAXIS
     Route: 048
  4. FLONASE [Concomitant]
     Indication: SINUS DISORDER
     Route: 045
  5. ALLBUTEROLOL [Concomitant]
     Indication: DYSPNOEA
     Route: 055
  6. DILUDID [Concomitant]
     Indication: ARTHRALGIA
     Dosage: 24 MG
     Route: 048
  7. AMLODIPRINE [Concomitant]
     Indication: BLOOD PRESSURE
     Dosage: 10 MG
     Route: 048
  8. MONOPRIL [Concomitant]
     Indication: BLOOD PRESSURE
     Dosage: 40 MG
     Route: 048
  9. OXYCODONE HCL [Concomitant]
     Indication: ARTHRALGIA
     Dosage: 120 MG
     Route: 048
  10. MOBIC [Suspect]
     Indication: GASTRIC POLYPS
     Dosage: 30 MG
     Route: 048
     Dates: start: 20120222
  11. DILUDID [Concomitant]
     Indication: ADHESION
  12. OXYCODONE HCL [Concomitant]
     Indication: NECK PAIN
  13. OXYCODONE HCL [Concomitant]
     Indication: ADHESION

REACTIONS (4)
  - GASTRIC POLYPS [None]
  - OEDEMA PERIPHERAL [None]
  - INCORRECT ROUTE OF DRUG ADMINISTRATION [None]
  - HYPOKALAEMIA [None]
